FAERS Safety Report 21177065 (Version 1)
Quarter: 2022Q3

REPORT INFORMATION
  Report Type: Spontaneous
  Country: US (occurrence: None)
  Receive Date: 20220804
  Receipt Date: 20220804
  Transmission Date: 20221027
  Serious: No
  Sender: FDA-Public Use
  Company Number: None

PATIENT
  Age: 26 Year
  Sex: Male
  Weight: 87.75 kg

DRUGS (7)
  1. QELBREE [Suspect]
     Active Substance: VILOXAZINE HYDROCHLORIDE
     Indication: Attention deficit hyperactivity disorder
     Dates: start: 20220728, end: 20220802
  2. LITHIUM [Concomitant]
     Active Substance: LITHIUM
  3. DEPAKOTE [Concomitant]
     Active Substance: DIVALPROEX SODIUM
  4. STRATTERA [Concomitant]
     Active Substance: ATOMOXETINE HYDROCHLORIDE
  5. VRAYLAR [Concomitant]
     Active Substance: CARIPRAZINE
  6. GABAPENTIN [Concomitant]
     Active Substance: GABAPENTIN
  7. QUETIAPINE [Concomitant]
     Active Substance: QUETIAPINE

REACTIONS (8)
  - Nausea [None]
  - Vomiting [None]
  - Migraine [None]
  - Fatigue [None]
  - Dehydration [None]
  - Eating disorder [None]
  - Feeling abnormal [None]
  - Feeling abnormal [None]

NARRATIVE: CASE EVENT DATE: 20220729
